FAERS Safety Report 5220559-4 (Version None)
Quarter: 2007Q1

REPORT INFORMATION
  Report Type: 
  Country: None (occurrence: None)
  Receive Date: 20070126
  Receipt Date: 20070117
  Transmission Date: 20070707
  Serious: Yes (Other)
  Sender: FDA-Public Use
  Company Number: US-JNJFOC-20061100797

PATIENT
  Sex: Female
  Weight: 59.88 kg

DRUGS (8)
  1. REMICADE [Suspect]
     Route: 042
  2. REMICADE [Suspect]
     Indication: COLITIS ULCERATIVE
     Dosage: 3 DOSES ON UNSPCIFED DATES
     Route: 042
  3. SINGULAIR [Concomitant]
  4. PREMARIN [Concomitant]
  5. PAXIL [Concomitant]
  6. SYNTHROID [Concomitant]
  7. ASACOL [Concomitant]
  8. VITAMIN CAP [Concomitant]

REACTIONS (3)
  - CATARACT [None]
  - CATHETERISATION CARDIAC [None]
  - SUDDEN HEARING LOSS [None]
